FAERS Safety Report 13842398 (Version 1)
Quarter: 2017Q3

REPORT INFORMATION
  Report Type: Spontaneous
  Country: US (occurrence: US)
  Receive Date: 20170807
  Receipt Date: 20170807
  Transmission Date: 20171127
  Serious: Yes (Hospitalization)
  Sender: FDA-Public Use
  Company Number: None

PATIENT
  Sex: Male

DRUGS (6)
  1. OMEPRAZOLE. [Concomitant]
     Active Substance: OMEPRAZOLE
  2. OMEGA 3 AND VITAMIN D [Concomitant]
  3. SULFAMETHOXAZOLE-TRIMETHOPRIM DS [Suspect]
     Active Substance: SULFAMETHOXAZOLE\TRIMETHOPRIM
     Indication: SKIN INFECTION
     Dosage: ?          QUANTITY:20 TABLET(S);?
     Route: 048
  4. MULTIVITAMIN [Concomitant]
     Active Substance: VITAMINS
  5. L-ARGININE [Concomitant]
     Active Substance: ARGININE
  6. L-LYSINE [Concomitant]
     Active Substance: LYSINE

REACTIONS (6)
  - Gait disturbance [None]
  - Fall [None]
  - Dysarthria [None]
  - Adverse drug reaction [None]
  - Feeling abnormal [None]
  - Headache [None]
